FAERS Safety Report 16041083 (Version 1)
Quarter: 2019Q1

REPORT INFORMATION
  Report Type: Spontaneous
  Country: US (occurrence: US)
  Receive Date: 20190306
  Receipt Date: 20190306
  Transmission Date: 20190418
  Serious: Yes (Other)
  Sender: FDA-Public Use
  Company Number: US-AKORN PHARMACEUTICALS-2018AKN01746

PATIENT
  Age: 38 Year
  Sex: Male
  Weight: 95.24 kg

DRUGS (3)
  1. MYORISAN [Suspect]
     Active Substance: ISOTRETINOIN
     Dosage: 40 MG, 1X/DAY
     Dates: start: 2018, end: 20181029
  2. MYORISAN [Suspect]
     Active Substance: ISOTRETINOIN
     Indication: GRANULOMA ANNULARE
     Dosage: 80 MG, 1X/DAY
     Dates: start: 20180611
  3. CLARAVIS [Suspect]
     Active Substance: ISOTRETINOIN
     Indication: GRANULOMA ANNULARE
     Dosage: 60 MG, 1X/DAY
     Dates: start: 20180814, end: 20181029

REACTIONS (5)
  - Blood cholesterol increased [Unknown]
  - Blood triglycerides increased [Unknown]
  - Alanine aminotransferase increased [Unknown]
  - Off label use [Recovered/Resolved]
  - Aspartate aminotransferase increased [Unknown]

NARRATIVE: CASE EVENT DATE: 2018
